FAERS Safety Report 20820657 (Version 5)
Quarter: 2022Q3

REPORT INFORMATION
  Report Type: Report from Study
  Country: US (occurrence: US)
  Receive Date: 20220512
  Receipt Date: 20220721
  Transmission Date: 20221026
  Serious: Yes (Hospitalization, Other)
  Sender: FDA-Public Use
  Company Number: US-NOVARTISTESTPH-NVSC2022US107774

PATIENT
  Sex: Female

DRUGS (1)
  1. ENTRESTO [Suspect]
     Active Substance: SACUBITRIL\VALSARTAN
     Indication: Product used for unknown indication
     Dosage: 1 DOSAGE FORM,BID
     Route: 048

REACTIONS (13)
  - Pneumonia [Recovered/Resolved]
  - Pleural effusion [Unknown]
  - Loss of consciousness [Recovering/Resolving]
  - Cyst [Recovering/Resolving]
  - Gait disturbance [Recovering/Resolving]
  - Peripheral swelling [Recovering/Resolving]
  - Bronchitis [Recovering/Resolving]
  - Cough [Recovering/Resolving]
  - Pain [Not Recovered/Not Resolved]
  - Somnolence [Unknown]
  - Weight fluctuation [Unknown]
  - Fall [Unknown]
  - Back pain [Unknown]
